FAERS Safety Report 13574945 (Version 1)
Quarter: 2017Q2

REPORT INFORMATION
  Report Type: Spontaneous
  Country: CN (occurrence: CN)
  Receive Date: 20170523
  Receipt Date: 20170523
  Transmission Date: 20170830
  Serious: Yes (Hospitalization)
  Sender: FDA-Public Use
  Company Number: CN-ABBVIE-17P-035-1985254-00

PATIENT
  Age: 44 Year
  Sex: Male

DRUGS (4)
  1. KAI FEN [Suspect]
     Active Substance: FLURBIPROFEN AXETIL
     Indication: ANALGESIC THERAPY
     Route: 041
     Dates: start: 20161204, end: 20161215
  2. SODIUM CHLORIDE. [Concomitant]
     Active Substance: SODIUM CHLORIDE
     Indication: PRODUCT USED FOR UNKNOWN INDICATION
     Dates: start: 20161204, end: 20161215
  3. DEPAKINE CHRONO [Suspect]
     Active Substance: VALPROATE SODIUM
     Indication: EPILEPSY
     Dosage: EXTENDED RELEASE
     Route: 048
     Dates: start: 20161206, end: 20161213
  4. PHENOBARBITAL SODIUM. [Suspect]
     Active Substance: PHENOBARBITAL SODIUM
     Indication: SEDATION
     Route: 030
     Dates: start: 20161204, end: 20161206

REACTIONS (3)
  - Liver function test abnormal [Recovering/Resolving]
  - Aspartate aminotransferase increased [None]
  - Alanine aminotransferase increased [None]

NARRATIVE: CASE EVENT DATE: 20161211
